FAERS Safety Report 6008103-5 (Version None)
Quarter: 2008Q4

REPORT INFORMATION
  Report Type: 
  Country: None (occurrence: None)
  Receive Date: 20081217
  Receipt Date: 20080822
  Transmission Date: 20090506
  Serious: No
  Sender: FDA-Public Use
  Company Number: US-ASTRAZENECA-2008UW17193

PATIENT
  Age: 60 Year
  Sex: Female
  Weight: 46.3 kg

DRUGS (3)
  1. CRESTOR [Suspect]
     Indication: BLOOD CHOLESTEROL INCREASED
     Route: 048
     Dates: start: 20080813
  2. ASPIRIN [Concomitant]
  3. COUGH SYRUP [Concomitant]

REACTIONS (1)
  - DRY MOUTH [None]
